FAERS Safety Report 16202332 (Version 1)
Quarter: 2019Q2

REPORT INFORMATION
  Report Type: Spontaneous
  Country: US (occurrence: US)
  Receive Date: 20190312
  Receipt Date: 20190312
  Transmission Date: 20190711
  Serious: No
  Sender: FDA-Public Use
  Company Number: None

PATIENT
  Age: 81 Year
  Sex: Female
  Weight: 53.98 kg

DRUGS (3)
  1. FORTEO [Suspect]
     Active Substance: TERIPARATIDE
     Indication: HAND FRACTURE
  2. FORTEO [Suspect]
     Active Substance: TERIPARATIDE
     Indication: SENILE OSTEOPOROSIS
     Route: 058
     Dates: start: 201808
  3. FORTEO [Suspect]
     Active Substance: TERIPARATIDE
     Indication: HAND FRACTURE
     Route: 058
     Dates: start: 201808

REACTIONS (2)
  - Asthma [None]
  - Arthritis [None]
